FAERS Safety Report 12798656 (Version 1)
Quarter: 2016Q3

REPORT INFORMATION
  Report Type: Spontaneous
  Country: CN (occurrence: CN)
  Receive Date: 20160930
  Receipt Date: 20160930
  Transmission Date: 20161109
  Serious: Yes (Other)
  Sender: FDA-Public Use
  Company Number: CN-ROCHE-1837162

PATIENT
  Age: 23 Year
  Sex: Female

DRUGS (1)
  1. CEFTRIAXONE SODIUM. [Suspect]
     Active Substance: CEFTRIAXONE SODIUM
     Indication: BREAST FIBROMA
     Route: 041

REACTIONS (1)
  - Extrapyramidal disorder [Recovered/Resolved]
